FAERS Safety Report 4953978-1 (Version None)
Quarter: 2006Q1

REPORT INFORMATION
  Report Type: 
  Country: None (occurrence: None)
  Receive Date: 20060321
  Receipt Date: 20060316
  Transmission Date: 20060701
  Serious: No
  Sender: FDA-Public Use
  Company Number: STA-AE-06-014

PATIENT
  Age: 83 Year
  Sex: Male

DRUGS (7)
  1. VERAPAMIL [Suspect]
     Indication: TACHYARRHYTHMIA
     Dosage: 120MG/DAY
  2. COLCHICINE [Suspect]
     Indication: GOUT
     Dosage: 2MG IN 2 DAYS
  3. DICLOFENAC [Concomitant]
  4. FUROSEMIDE [Concomitant]
  5. ACETYLSALICYLIC ACID SRT [Concomitant]
  6. AMBROXOL [Concomitant]
  7. THEOPHYLLINE [Concomitant]

REACTIONS (8)
  - CSF PROTEIN INCREASED [None]
  - DRUG LEVEL ABOVE THERAPEUTIC [None]
  - LOWER MOTOR NEURONE LESION [None]
  - MYOPATHY [None]
  - NEUROPATHY [None]
  - PARALYSIS FLACCID [None]
  - QUADRIPARESIS [None]
  - SICK SINUS SYNDROME [None]
